FAERS Safety Report 7663719-5 (Version None)
Quarter: 2011Q3

REPORT INFORMATION
  Report Type: 
  Country: None (occurrence: None)
  Receive Date: 20110805
  Receipt Date: 20100918
  Transmission Date: 20111222
  Serious: No
  Sender: FDA-Public Use
  Company Number: US-ABBOTT-10P-163-0671643-00

PATIENT
  Age: 37 Year
  Sex: Male
  Weight: 86.26 kg

DRUGS (1)
  1. NIASPAN [Suspect]
     Indication: BLOOD CHOLESTEROL INCREASED
     Dosage: AT BEDTIME
     Dates: start: 20100917

REACTIONS (4)
  - HOT FLUSH [None]
  - PRURITUS [None]
  - GENERALISED ERYTHEMA [None]
  - NAUSEA [None]
